FAERS Safety Report 7755117-0 (Version None)
Quarter: 2011Q3

REPORT INFORMATION
  Report Type: 
  Country: None (occurrence: None)
  Receive Date: 20110916
  Receipt Date: 20110912
  Transmission Date: 20111222
  Serious: No
  Sender: FDA-Public Use
  Company Number: US-PFIZER INC-2011215377

PATIENT
  Sex: Female

DRUGS (3)
  1. ALDACTONE [Suspect]
     Dosage: 50 MG, UNK
  2. PROTONIX [Concomitant]
     Dosage: UNK
  3. ALDACTONE [Suspect]
     Indication: ANDROGENS ABNORMAL
     Dosage: 100 MG, UNK

REACTIONS (2)
  - FLUID RETENTION [None]
  - OEDEMA [None]
